FAERS Safety Report 20965995 (Version 2)
Quarter: 2022Q3

REPORT INFORMATION
  Report Type: Spontaneous
  Country: US (occurrence: US)
  Receive Date: 20220616
  Receipt Date: 20220708
  Transmission Date: 20221027
  Serious: Yes (Hospitalization)
  Sender: FDA-Public Use
  Company Number: US-TEVA-2022-US-2045607

PATIENT
  Age: 24 Year
  Sex: Female

DRUGS (3)
  1. PROPYLTHIOURACIL [Suspect]
     Active Substance: PROPYLTHIOURACIL
     Indication: Hyperthyroidism
     Dosage: 50 MILLIGRAM DAILY;
     Route: 065
  2. METHIMAZOLE [Suspect]
     Active Substance: METHIMAZOLE
     Indication: Hyperthyroidism
     Dosage: 30 MILLIGRAM DAILY;
     Route: 065
  3. METHIMAZOLE [Suspect]
     Active Substance: METHIMAZOLE
     Route: 065

REACTIONS (4)
  - Agranulocytosis [Recovering/Resolving]
  - Sinus tachycardia [Recovering/Resolving]
  - Tonsillitis [Recovering/Resolving]
  - Sepsis [Recovering/Resolving]
